FAERS Safety Report 7817861-6 (Version None)
Quarter: 2011Q4

REPORT INFORMATION
  Report Type: 
  Country: None (occurrence: None)
  Receive Date: 20111017
  Receipt Date: 20111013
  Transmission Date: 20120403
  Serious: Yes (Hospitalization, Other)
  Sender: FDA-Public Use
  Company Number: US-MERCK-1108USA00640

PATIENT
  Age: 69 Year
  Sex: Female

DRUGS (2)
  1. PREDNISONE [Concomitant]
     Route: 065
     Dates: start: 19650101
  2. FOSAMAX [Suspect]
     Indication: OSTEOPOROSIS
     Route: 048

REACTIONS (6)
  - STRESS FRACTURE [None]
  - HYPERTENSION [None]
  - FALL [None]
  - BREAST CANCER FEMALE [None]
  - ADVERSE EVENT [None]
  - FEMUR FRACTURE [None]
